FAERS Safety Report 16850619 (Version 1)
Quarter: 2019Q3

REPORT INFORMATION
  Report Type: Spontaneous
  Country: US (occurrence: US)
  Receive Date: 20190925
  Receipt Date: 20190925
  Transmission Date: 20191005
  Serious: No
  Sender: FDA-Public Use
  Company Number: US-THERAPEUTICSMD-2019TMD02390

PATIENT
  Sex: Female
  Weight: 58.05 kg

DRUGS (4)
  1. IMVEXXY [Suspect]
     Active Substance: ESTRADIOL
     Indication: URINARY TRACT INFECTION
     Dosage: 10 ?G, 1X/DAY AT BEDTIME
     Route: 067
     Dates: start: 201906, end: 2019
  2. UNSPECIFIED VITAMINS [Concomitant]
     Active Substance: VITAMINS
  3. IMVEXXY [Suspect]
     Active Substance: ESTRADIOL
     Indication: VULVOVAGINAL DRYNESS
     Dosage: 10 ?G, EVERY 48 HOURS AT BEDTIME
     Route: 067
     Dates: start: 2019, end: 2019
  4. PROGESTERONE/ESTROGEN [Concomitant]
     Route: 048

REACTIONS (6)
  - Vaginal discharge [Recovered/Resolved]
  - Breast swelling [Recovered/Resolved]
  - Product substitution issue [Recovered/Resolved]
  - Breast pain [Recovered/Resolved]
  - Breast tenderness [Recovering/Resolving]
  - Off label use [Recovered/Resolved]

NARRATIVE: CASE EVENT DATE: 2019
